FAERS Safety Report 9111369 (Version 1)
Quarter: 2013Q1

REPORT INFORMATION
  Report Type: Spontaneous
  Country: US (occurrence: US)
  Receive Date: 20130219
  Receipt Date: 20130219
  Transmission Date: 20140127
  Serious: No
  Sender: FDA-Public Use
  Company Number: US-BRISTOL-MYERS SQUIBB COMPANY-16608150

PATIENT
  Age: 68 Year
  Sex: Male

DRUGS (1)
  1. ORENCIA [Suspect]
     Indication: RHEUMATOID ARTHRITIS
     Dosage: 3 ORENCIA TREATMENTS,28-FEB-2012,27-MAR-2012, 24-APR-2012.NO OF VIALS:4
     Route: 042
     Dates: start: 20120228

REACTIONS (2)
  - Device breakage [Unknown]
  - Musculoskeletal stiffness [Unknown]
